FAERS Safety Report 5953362-8 (Version None)
Quarter: 2008Q4

REPORT INFORMATION
  Report Type: 
  Country: None (occurrence: None)
  Receive Date: 20081114
  Receipt Date: 20081113
  Transmission Date: 20090506
  Serious: Yes (Other)
  Sender: FDA-Public Use
  Company Number: CH-BRISTOL-MYERS SQUIBB COMPANY-14399372

PATIENT
  Age: 57 Year
  Sex: Male

DRUGS (6)
  1. ORENCIA [Suspect]
     Indication: RHEUMATOID ARTHRITIS
     Dosage: 750 MG PER INFUSION
     Route: 042
     Dates: start: 20080820, end: 20080903
  2. METHOTREXATE [Concomitant]
     Route: 058
  3. SPIRICORT [Concomitant]
  4. ATACAND [Concomitant]
     Dosage: (1-0-0)
  5. INFLAMAC [Concomitant]
  6. ACIDUM FOLICUM [Concomitant]

REACTIONS (1)
  - MYALGIA [None]
